FAERS Safety Report 7108796-5 (Version None)
Quarter: 2010Q4

REPORT INFORMATION
  Report Type: 
  Country: None (occurrence: None)
  Receive Date: 20101117
  Receipt Date: 20101109
  Transmission Date: 20110411
  Serious: Yes (Death)
  Sender: FDA-Public Use
  Company Number: NL-ACTELION-A-CH2010-41461

PATIENT
  Sex: Male
  Weight: 83 kg

DRUGS (6)
  1. TRACLEER [Suspect]
     Indication: PULMONARY HYPERTENSION
     Dosage: 125 MG, BID
     Route: 048
     Dates: start: 20101021, end: 20101103
  2. TRACLEER [Suspect]
     Dosage: 62.5 MG, BID
     Route: 048
     Dates: start: 20100823, end: 20101020
  3. SILDENAFIL CITRATE [Concomitant]
     Dosage: UNK
     Dates: start: 20100722
  4. ATENOLOL [Concomitant]
  5. LOSARTAN [Concomitant]
  6. NADROPARIN [Concomitant]
     Dosage: UNK
     Dates: start: 20101028

REACTIONS (2)
  - ENDARTERECTOMY [None]
  - PROCEDURAL COMPLICATION [None]
